FAERS Safety Report 10704344 (Version 1)
Quarter: 2014Q4

REPORT INFORMATION
  Report Type: Report from Study
  Country: US (occurrence: None)
  Receive Date: 20141224
  Receipt Date: 20141224
  Transmission Date: 20150529
  Serious: No
  Sender: FDA-Public Use
  Company Number: CABO-14004879

PATIENT
  Age: 43 Year
  Sex: Male

DRUGS (2)
  1. COMETRIQ [Suspect]
     Active Substance: CABOZANTINIB S-MALATE
     Indication: THYROID CANCER
     Route: 048
     Dates: start: 200709, end: 20130521
  2. GINKGO BILOBA (GINKGO BILOBA) [Concomitant]
     Active Substance: GINKGO

REACTIONS (4)
  - Skin lesion [None]
  - Memory impairment [None]
  - Fatigue [None]
  - Diarrhoea [None]

NARRATIVE: CASE EVENT DATE: 2014
